FAERS Safety Report 10219249 (Version 1)
Quarter: 2014Q2

REPORT INFORMATION
  Report Type: Spontaneous
  Country: US (occurrence: None)
  Receive Date: 20140604
  Receipt Date: 20140604
  Transmission Date: 20141212
  Serious: Yes (Hospitalization)
  Sender: FDA-Public Use
  Company Number: None

PATIENT
  Age: 69 Year
  Sex: Male
  Weight: 101.4 kg

DRUGS (1)
  1. PIPERACILLIN/TAZOBACTAM [Suspect]
     Indication: INFECTION
     Route: 042
     Dates: start: 20140427, end: 20140506

REACTIONS (8)
  - Thrombocytopenia [None]
  - Chills [None]
  - Chills [None]
  - Sinus tachycardia [None]
  - Lactic acidosis [None]
  - Blood pressure decreased [None]
  - Klebsiella test positive [None]
  - Escherichia test positive [None]
